FAERS Safety Report 23804534 (Version 1)
Quarter: 2024Q2

REPORT INFORMATION
  Report Type: Spontaneous
  Country: CN (occurrence: CN)
  Receive Date: 20240501
  Receipt Date: 20240501
  Transmission Date: 20240716
  Serious: Yes (Hospitalization)
  Sender: FDA-Public Use
  Company Number: CN-PFIZER INC-PV202400055940

PATIENT
  Age: 70 Year
  Sex: Male
  Weight: 75 kg

DRUGS (3)
  1. LINEZOLID [Suspect]
     Active Substance: LINEZOLID
     Indication: Anti-infective therapy
     Dosage: 0.6 G, 2X/DAY
     Route: 048
     Dates: start: 20240409, end: 20240417
  2. SULFAMETHOXAZOLE [Concomitant]
     Active Substance: SULFAMETHOXAZOLE
     Indication: Anti-infective therapy
     Dosage: 0.96 G, 3X/DAY
     Route: 048
     Dates: start: 20240411, end: 20240415
  3. FLUCONAZOLE [Concomitant]
     Active Substance: FLUCONAZOLE
     Indication: Anti-infective therapy
     Dosage: 0.200 G, 1X/DAY
     Route: 041
     Dates: start: 20240411, end: 20240417

REACTIONS (8)
  - Platelet count decreased [Unknown]
  - Haemoglobin decreased [Unknown]
  - Heart rate increased [Unknown]
  - Respiratory rate increased [Unknown]
  - Hypotension [Unknown]
  - Oxygen saturation decreased [Unknown]
  - Altered state of consciousness [Unknown]
  - Gastric occult blood positive [Unknown]

NARRATIVE: CASE EVENT DATE: 20240417
